FAERS Safety Report 19696615 (Version 1)
Quarter: 2021Q3

REPORT INFORMATION
  Report Type: Spontaneous
  Country: US (occurrence: US)
  Receive Date: 20210813
  Receipt Date: 20210813
  Transmission Date: 20211014
  Serious: No
  Sender: FDA-Public Use
  Company Number: US-BAYER-2021-191458

PATIENT
  Age: 27 Year
  Sex: Female

DRUGS (2)
  1. NAPROXEN SODIUM ({= 220 MG) [Suspect]
     Active Substance: NAPROXEN SODIUM
     Indication: HEADACHE
     Dosage: UNK
     Dates: start: 20210611
  2. ASPIRIN (PAIN AND FEVER) [Suspect]
     Active Substance: ASPIRIN
     Indication: HEADACHE
     Dosage: UNK
     Dates: start: 20210611

REACTIONS (1)
  - Drug ineffective [Unknown]

NARRATIVE: CASE EVENT DATE: 20210611
